FAERS Safety Report 6371121-1 (Version None)
Quarter: 2009Q3

REPORT INFORMATION
  Report Type: 
  Country: None (occurrence: None)
  Receive Date: 20090918
  Receipt Date: 20090908
  Transmission Date: 20100115
  Serious: Yes (Death, Life-Threatening)
  Sender: FDA-Public Use
  Company Number: A-JP2009-24095

PATIENT
  Age: 74 Year
  Sex: Male
  Weight: 36 kg

DRUGS (18)
  1. TRACLEER [Suspect]
     Indication: PULMONARY ARTERIAL HYPERTENSION
     Dosage: 31.25 MG, BID, ORAL
     Route: 048
     Dates: start: 20081112, end: 20090112
  2. BERAPROST SODIUM(BERAPROST SODIUM) [Suspect]
     Dosage: 240 UG, OD, ORAL, 60 UG, OD, ORAL, 120 UG, OD, ORAL, 120 UG, OD, ORAL
     Route: 048
     Dates: end: 20081120
  3. BERAPROST SODIUM(BERAPROST SODIUM) [Suspect]
     Dosage: 240 UG, OD, ORAL, 60 UG, OD, ORAL, 120 UG, OD, ORAL, 120 UG, OD, ORAL
     Route: 048
     Dates: start: 20081121, end: 20081124
  4. BERAPROST SODIUM(BERAPROST SODIUM) [Suspect]
     Dosage: 240 UG, OD, ORAL, 60 UG, OD, ORAL, 120 UG, OD, ORAL, 120 UG, OD, ORAL
     Route: 048
     Dates: start: 20081125, end: 20081125
  5. BERAPROST SODIUM(BERAPROST SODIUM) [Suspect]
     Dosage: 240 UG, OD, ORAL, 60 UG, OD, ORAL, 120 UG, OD, ORAL, 120 UG, OD, ORAL
     Route: 048
     Dates: start: 20081126
  6. FUROSEMIDE [Concomitant]
  7. LANSOPRAZOLE [Concomitant]
  8. BECLOMETHASONE DIPROPIONATE [Concomitant]
  9. OXITROPIUM BROMIDE (OXITROPIUM BROMIDE) [Concomitant]
  10. PROCATEROL HCL [Concomitant]
  11. MEROPENEM TRIHYDRATE (METOPENEM TRIHYDRATE) [Concomitant]
  12. TIOTROPIUM BROMIDE (TIOTROPIUM BROMIDE) [Concomitant]
  13. SALMETEROL/FLUTICASONPROPIONAAT (FLUTICASONE PROPIONATE, SALMETEROL XI [Concomitant]
  14. CARBOCISTEINE (CARBOCISTEINE) [Concomitant]
  15. THEOPHYLLINE [Concomitant]
  16. MAGNESIUM OXIDE (MAGNESIUM OXIDE) [Concomitant]
  17. DOCARPAMINE (DOCARPAMINE) [Concomitant]
  18. OXYGEN (OXYGEN) [Concomitant]

REACTIONS (12)
  - ACTH-PRODUCING PITUITARY TUMOUR [None]
  - AORTIC ARTERIOSCLEROSIS [None]
  - BONE MARROW FAILURE [None]
  - CARDIAC FAILURE [None]
  - CEREBRAL ATROPHY [None]
  - CONDITION AGGRAVATED [None]
  - DISEASE PROGRESSION [None]
  - DRUG INTERACTION [None]
  - HYPERADRENOCORTICISM [None]
  - LUNG SQUAMOUS CELL CARCINOMA STAGE UNSPECIFIED [None]
  - PULMONARY ARTERIAL HYPERTENSION [None]
  - RESPIRATORY FAILURE [None]
